FAERS Safety Report 7956940-X (Version None)
Quarter: 2011Q4

REPORT INFORMATION
  Report Type: 
  Country: None (occurrence: None)
  Receive Date: 20111205
  Receipt Date: 20111205
  Transmission Date: 20120403
  Serious: Yes (Hospitalization)
  Sender: FDA-Public Use
  Company Number: None

PATIENT
  Age: 68 Year
  Sex: Female
  Weight: 111.58 kg

DRUGS (1)
  1. LEVOFLOXACIN [Suspect]
     Indication: SINUSITIS
     Dosage: 1 TABLET
     Route: 048
     Dates: start: 20111201, end: 20111201

REACTIONS (4)
  - DIARRHOEA [None]
  - NO REACTION ON PREVIOUS EXPOSURE TO DRUG [None]
  - DYSPNOEA [None]
  - MYALGIA [None]
